FAERS Safety Report 7985345-0 (Version None)
Quarter: 2011Q4

REPORT INFORMATION
  Report Type: 
  Country: None (occurrence: None)
  Receive Date: 20111216
  Receipt Date: 20111017
  Transmission Date: 20120403
  Serious: No
  Sender: FDA-Public Use
  Company Number: US-ABBOTT-11P-163-0866171-00

PATIENT
  Sex: Male
  Weight: 83.082 kg

DRUGS (6)
  1. TESTOSTERONE [Concomitant]
     Indication: ASTHENIA
  2. TRILIPIX [Suspect]
     Indication: BLOOD TRIGLYCERIDES INCREASED
     Dates: start: 20111010
  3. MORPHINE [Concomitant]
     Indication: PAIN IN EXTREMITY
  4. WELLBUTRIN [Concomitant]
     Indication: DEPRESSION
  5. METHADONE HCL [Concomitant]
     Indication: BREAKTHROUGH PAIN
  6. INHALER [Concomitant]
     Indication: CHRONIC OBSTRUCTIVE PULMONARY DISEASE

REACTIONS (2)
  - ASTHENIA [None]
  - FATIGUE [None]
